FAERS Safety Report 5754806-7 (Version None)
Quarter: 2008Q2

REPORT INFORMATION
  Report Type: 
  Country: None (occurrence: None)
  Receive Date: 20080527
  Receipt Date: 20080519
  Transmission Date: 20081010
  Serious: Yes (Death)
  Sender: FDA-Public Use
  Company Number: DAV-AE-MTX-08-007

PATIENT
  Age: 35 Year
  Sex: Female

DRUGS (6)
  1. METHOTREXATE [Suspect]
     Indication: GLIOBLASTOMA MULTIFORME
     Dosage: 12 G/M2 X 4HR
  2. DEXTROSE 5% [Concomitant]
  3. SODIUM BICARBONATE [Concomitant]
  4. PHENOBARBITAL TAB [Concomitant]
  5. DEXAMETHASONE TAB [Concomitant]
  6. LEUCOVORIN CALCIUM [Concomitant]

REACTIONS (15)
  - AREFLEXIA [None]
  - BRAIN COMPRESSION [None]
  - BRAIN HERNIATION [None]
  - BRAIN OEDEMA [None]
  - DEPRESSED LEVEL OF CONSCIOUSNESS [None]
  - DRUG TOXICITY [None]
  - FATIGUE [None]
  - LOSS OF CONSCIOUSNESS [None]
  - NAUSEA [None]
  - OEDEMA [None]
  - PARTIAL SEIZURES [None]
  - PETIT MAL EPILEPSY [None]
  - SOMNOLENCE [None]
  - UNRESPONSIVE TO STIMULI [None]
  - VOMITING [None]
